FAERS Safety Report 9762514 (Version 1)
Quarter: 2013Q4

REPORT INFORMATION
  Report Type: Spontaneous
  Country: US (occurrence: US)
  Receive Date: 20131216
  Receipt Date: 20131216
  Transmission Date: 20140711
  Serious: No
  Sender: FDA-Public Use
  Company Number: US-BIOGENIDEC-2013BI104467

PATIENT
  Age: 48 Year
  Sex: Female

DRUGS (11)
  1. TECFIDERA [Suspect]
     Indication: MULTIPLE SCLEROSIS
     Route: 048
     Dates: start: 20130717
  2. COQ-10 [Concomitant]
  3. GABAPENTIN [Concomitant]
  4. LEVOTHYROXINE SODIUM [Concomitant]
  5. MECLIZINE HCL [Concomitant]
  6. MOTRIN [Concomitant]
  7. NORTRIPTYLINE HCL [Concomitant]
  8. TOPAMAX [Concomitant]
  9. TRAZODONE HCL [Concomitant]
  10. VITAMIN B12 [Concomitant]
  11. VITAMIN B1 [Concomitant]

REACTIONS (1)
  - Diarrhoea [Unknown]
